FAERS Safety Report 21295055 (Version 1)
Quarter: 2022Q3

REPORT INFORMATION
  Report Type: Spontaneous
  Country: ES (occurrence: ES)
  Receive Date: 20220905
  Receipt Date: 20220905
  Transmission Date: 20221027
  Serious: Yes (Hospitalization)
  Sender: FDA-Public Use
  Company Number: None

PATIENT
  Age: 39 Year
  Sex: Female

DRUGS (2)
  1. ADCETRIS [Suspect]
     Active Substance: BRENTUXIMAB VEDOTIN
     Indication: Hodgkin^s disease
     Dosage: 133.2MG
     Route: 065
     Dates: start: 20220817, end: 20220817
  2. BENDAMUSTINE [Suspect]
     Active Substance: BENDAMUSTINE
     Indication: Hodgkin^s disease
     Dosage: 183MG
     Route: 065
     Dates: start: 20220817, end: 20220817

REACTIONS (3)
  - Hypotension [Recovering/Resolving]
  - Rash [Recovering/Resolving]
  - Pyrexia [Recovered/Resolved]

NARRATIVE: CASE EVENT DATE: 20220817
